FAERS Safety Report 6664719-4 (Version None)
Quarter: 2010Q1

REPORT INFORMATION
  Report Type: 
  Country: None (occurrence: None)
  Receive Date: 20100330
  Receipt Date: 20091228
  Transmission Date: 20100710
  Serious: Yes (Hospitalization)
  Sender: FDA-Public Use
  Company Number: 6056968

PATIENT
  Age: 85 Year
  Sex: Female

DRUGS (10)
  1. LEVOTHYROXINE SODIUM [Suspect]
     Indication: HYPOTHYROIDISM
     Dosage: 75 MCG (75 MCG, 1 D)
     Route: 048
     Dates: start: 20091001
  2. OFLOCET (TABLET) (OFLOXACIN) [Suspect]
     Indication: ENDOCARDITIS BACTERIAL
     Dosage: 400 MG (200 MG, 2 IN 1 D)
     Route: 048
     Dates: start: 20091027
  3. CEFTRIAXONE PANPHARMA (1 GRAM, POWDER FOR SOLUTION FOR INJECTION ) (CE [Suspect]
     Indication: ENDOCARDITIS BACTERIAL
     Dosage: 2 GM ( 2 GM, 1 D)
     Route: 042
     Dates: start: 20091028
  4. PYOSTACINE (500 MG, TABLET) (PRISTINAMYCIN) [Suspect]
     Indication: EAR INFECTION
     Dosage: 2 GM (2 GM, 2 D)
     Route: 048
     Dates: start: 20090925, end: 20091027
  5. AMLODIPINE BESYLATE [Suspect]
     Indication: HYPERTENSION
     Dosage: 5 MG (5 MG, 1 D)
     Route: 048
     Dates: start: 20091031
  6. LEXOMIL ROCHE (TABLET) (BROMAZEPAM) [Suspect]
     Indication: ANXIETY
     Dosage: 0.75 DOSAGE FORMS (0.75 DOSAGE FORMS, 1 D)
     Route: 048
     Dates: start: 20091030
  7. IXPRIM (PARACETAMOL, TRAMADOL) [Suspect]
     Indication: ANALGESIC INTERVENTION SUPPORTIVE THERAPY
     Route: 048
     Dates: start: 20091101
  8. TOPALGIC LP (100 MG, PROLONGED-RELEASE TABLET) (TRAMADOL HYDROCHLORIDE [Suspect]
     Indication: ANALGESIC INTERVENTION SUPPORTIVE THERAPY
     Dosage: 1 DOSAGE FORMS (1 DOSAGE FORMS, 1 D)
     Route: 048
     Dates: start: 20091029, end: 20091107
  9. LASIX [Suspect]
     Dosage: 1 DOSAGE FORMS (1 DOSAGE FORMS, 1 D)
     Route: 048
     Dates: start: 20091029, end: 20091107
  10. ASPIRIN [Suspect]
     Indication: ISCHAEMIC HEART DISEASE PROPHYLAXIS
     Dosage: 1 DOSAGE FORMS (1 DOSAGE FORMS, 1 D)
     Route: 048
     Dates: start: 20090810

REACTIONS (5)
  - ANXIETY [None]
  - ENDOCARDITIS BACTERIAL [None]
  - HYPERTENSION [None]
  - SKIN INFECTION [None]
  - THROMBOCYTOPENIA [None]
